FAERS Safety Report 15772422 (Version 1)
Quarter: 2020Q3

REPORT INFORMATION
  Report Type: Report from Study
  Country: US (occurrence: US)
  Receive Date: 20181228
  Receipt Date: 20181228
  Transmission Date: 20201105
  Serious: Yes (Hospitalization)
  Sender: FDA-Public Use
  Company Number: US-PFIZER INC-2018527074

PATIENT
  Age: 13 Year
  Sex: Male
  Weight: 42.7 kg

DRUGS (6)
  1. TALAZOPARIB. [Suspect]
     Active Substance: TALAZOPARIB
     Indication: EWING-LIKE SARCOMA
     Dosage: 500 MCG/DAY BID PO ON DAY 1, THEN 800 MCG DAILY ON DAYS 2?6 EVERY 3 WEEKS
     Route: 048
     Dates: start: 20180531
  2. IRINOTECAN HCL [Suspect]
     Active Substance: IRINOTECAN HYDROCHLORIDE
     Indication: EWING-LIKE SARCOMA
     Dosage: 54MG/DAYDAYS 2?6 EVERY 3 WEEKS
     Route: 042
     Dates: start: 20180531
  3. TEMOZOLOMIDE. [Suspect]
     Active Substance: TEMOZOLOMIDE
     Indication: EWING-LIKE SARCOMA
     Dosage: 3 MG, DAYS 2?6 EVERY 3 WEEKS
     Route: 048
     Dates: start: 20180531
  4. CEFIXIME. [Concomitant]
     Active Substance: CEFIXIME
     Indication: PROPHYLAXIS
  5. SEPTRA [Concomitant]
     Active Substance: SULFAMETHOXAZOLE\TRIMETHOPRIM
     Indication: ANTIFUNGAL PROPHYLAXIS
     Dosage: DAILY MON,TUES, WEDS
     Dates: start: 20180914
  6. CEFIXIME. [Concomitant]
     Active Substance: CEFIXIME
     Indication: DIARRHOEA
     Dosage: 100 MG, DAILY
     Dates: start: 20180529

REACTIONS (2)
  - Pyrexia [Recovered/Resolved]
  - Thrombocytopenia [Recovered/Resolved]

NARRATIVE: CASE EVENT DATE: 20181209
